FAERS Safety Report 5034047-1 (Version None)
Quarter: 2006Q2

REPORT INFORMATION
  Report Type: 
  Country: None (occurrence: None)
  Receive Date: 20060626
  Receipt Date: 20060525
  Transmission Date: 20061013
  Serious: Yes (Hospitalization)
  Sender: FDA-Public Use
  Company Number: CA-AMGEN-KDL180877

PATIENT
  Sex: Female

DRUGS (6)
  1. ENBREL [Suspect]
     Indication: RHEUMATOID ARTHRITIS
     Route: 058
     Dates: start: 20051222, end: 20060317
  2. METHOTREXATE [Suspect]
     Dates: start: 20040101
  3. DICLOFENAC [Concomitant]
     Dates: start: 20030101
  4. INH [Concomitant]
     Dates: start: 20051020
  5. VITAMIN B6 [Concomitant]
     Dates: start: 20051020
  6. FUROSEMIDE [Concomitant]
     Route: 048

REACTIONS (3)
  - NON-HODGKIN'S LYMPHOMA [None]
  - PNEUMONIA [None]
  - RESPIRATORY FAILURE [None]
